FAERS Safety Report 9920123 (Version 1)
Quarter: 2014Q1

REPORT INFORMATION
  Report Type: Other
  Country: PT (occurrence: PT)
  Receive Date: 20140224
  Receipt Date: 20140224
  Transmission Date: 20141002
  Serious: Yes (Other)
  Sender: FDA-Public Use
  Company Number: PT-BRISTOL-MYERS SQUIBB COMPANY-20289971

PATIENT
  Sex: 0

DRUGS (4)
  1. CETUXIMAB [Suspect]
     Indication: SQUAMOUS CELL CARCINOMA OF HEAD AND NECK
     Dosage: 400 MG/M2 + 250MG/M2 1 IN WK - (BETWEEN JAN 2009 TO DEC 2012)
     Route: 042
     Dates: start: 200901
  2. CISPLATIN FOR INJ [Suspect]
     Indication: SQUAMOUS CELL CARCINOMA OF HEAD AND NECK
     Dosage: 100 MG/M2,L IN 3 WK JAN 2008 AND DEC 2012
     Route: 042
     Dates: start: 200901
  3. CARBOPLATIN INJECTION [Suspect]
     Indication: SQUAMOUS CELL CARCINOMA OF HEAD AND NECK
     Dosage: 1DF= AUC 5 UNIT NOS?(BETWEEN JAN 2009 AND DEC 2012)
     Route: 042
     Dates: start: 200901
  4. 5-FLUOROURACIL [Suspect]
     Indication: SQUAMOUS CELL CARCINOMA OF HEAD AND NECK
     Dosage: JAN 2009 AND DEC 2012
     Route: 042
     Dates: start: 200901

REACTIONS (1)
  - Haematotoxicity [Unknown]
